FAERS Safety Report 4277791-6 (Version None)
Quarter: 2004Q1

REPORT INFORMATION
  Report Type: 
  Country: None (occurrence: None)
  Receive Date: 20040121
  Receipt Date: 20040116
  Transmission Date: 20041129
  Serious: Yes (Hospitalization)
  Sender: FDA-Public Use
  Company Number: STA-AE-04-MTX-014

PATIENT
  Age: 58 Year
  Sex: Female

DRUGS (2)
  1. METHOTREXATE [Suspect]
     Indication: RHEUMATOID ARTHRITIS
     Dosage: 7.5 MG 1X PER 1 WK
  2. REMICADE [Suspect]
     Indication: RHEUMATOID ARTHRITIS
     Dosage: 10MG/KG EVERY 2 MONTHS

REACTIONS (19)
  - ARTHRITIS [None]
  - BRONCHOPULMONARY ASPERGILLOSIS [None]
  - CITROBACTER INFECTION [None]
  - COMA [None]
  - DISSEMINATED INTRAVASCULAR COAGULATION [None]
  - DISSEMINATED TUBERCULOSIS [None]
  - DYSPNOEA [None]
  - ESCHERICHIA INFECTION [None]
  - HAEMOPHILUS INFECTION [None]
  - HEMIPARESIS [None]
  - HERPES SIMPLEX [None]
  - HYPONATRAEMIA [None]
  - PANCYTOPENIA [None]
  - PNEUMONIA BACTERIAL [None]
  - POLYNEUROPATHY [None]
  - PYREXIA [None]
  - RESPIRATORY FAILURE [None]
  - SHOCK [None]
  - SOMNOLENCE [None]
